FAERS Safety Report 24185425 (Version 1)
Quarter: 2024Q3

REPORT INFORMATION
  Report Type: Spontaneous
  Country: FR (occurrence: FR)
  Receive Date: 20240807
  Receipt Date: 20240807
  Transmission Date: 20241017
  Serious: Yes (Death, Hospitalization, Other)
  Sender: SANOFI AVENTIS
  Company Number: None

PATIENT
  Age: 77 Year
  Sex: Male

DRUGS (10)
  1. LOVENOX [Suspect]
     Active Substance: ENOXAPARIN SODIUM
     Indication: Anticoagulant therapy
     Dosage: 2 DF, QD (10,000 IU/12 H)
     Route: 058
     Dates: start: 20240418, end: 20240428
  2. ASPIRIN [Suspect]
     Active Substance: ASPIRIN
     Indication: Anticoagulant therapy
     Dosage: UNK
     Dates: start: 20240418
  3. HEPARIN [Suspect]
     Active Substance: HEPARIN SODIUM
     Indication: Anticoagulant therapy
     Dosage: UNK
     Route: 042
     Dates: start: 20240501, end: 20240508
  4. TICAGRELOR [Suspect]
     Active Substance: TICAGRELOR
     Indication: Anticoagulant therapy
     Dosage: UNK
     Dates: start: 20240418
  5. TRIPTORELIN [Concomitant]
     Active Substance: TRIPTORELIN
     Indication: Prostate cancer
     Dosage: UNK
  6. ENZALUTAMIDE [Concomitant]
     Active Substance: ENZALUTAMIDE
     Indication: Prostate cancer
     Dosage: 160 MG, QD
  7. ATORVASTATIN [Concomitant]
     Active Substance: ATORVASTATIN
     Dosage: 10 MG, QD; EVENING
  8. PERINDOPRIL [Concomitant]
     Active Substance: PERINDOPRIL
     Dosage: 4 MG, QD; MORNING
  9. ACETAMINOPHEN [Concomitant]
     Active Substance: ACETAMINOPHEN
     Dosage: UNK
  10. CAFFEINE [Concomitant]
     Active Substance: CAFFEINE
     Dosage: 2 DF, BID; 2 TABLETS MORNING AND MIDDAY

REACTIONS (5)
  - Heparin-induced thrombocytopenia [Recovered/Resolved]
  - Septic shock [Fatal]
  - Pneumonia bacterial [Unknown]
  - Serratia infection [Unknown]
  - Enterococcal infection [Unknown]

NARRATIVE: CASE EVENT DATE: 20240507
